FAERS Safety Report 21749466 (Version 2)
Quarter: 2022Q4

REPORT INFORMATION
  Report Type: Report from Study
  Country: GB (occurrence: GB)
  Receive Date: 20221219
  Receipt Date: 20221226
  Transmission Date: 20230112
  Serious: Yes (Hospitalization)
  Sender: FDA-Public Use
  Company Number: GB-BAYER-2022A171486

PATIENT
  Sex: Female
  Weight: 19.2 kg

DRUGS (13)
  1. REGORAFENIB [Suspect]
     Active Substance: REGORAFENIB
     Indication: Rhabdomyosarcoma
     Dosage: 65 MG, QD
     Route: 048
     Dates: start: 20220801, end: 20221202
  2. REGORAFENIB [Suspect]
     Active Substance: REGORAFENIB
     Indication: Rhabdomyosarcoma
     Dosage: 65 MG, QD
     Route: 048
     Dates: end: 20221212
  3. IRINOTECAN [Suspect]
     Active Substance: IRINOTECAN
     Indication: Rhabdomyosarcoma
     Dosage: 40 MG, QD
     Route: 042
     Dates: start: 20220725, end: 20221124
  4. IRINOTECAN [Suspect]
     Active Substance: IRINOTECAN
     Indication: Rhabdomyosarcoma
     Dosage: 40 MG, QD
     Route: 042
     Dates: end: 20221214
  5. VINCRISTINE [Suspect]
     Active Substance: VINCRISTINE
     Indication: Rhabdomyosarcoma
     Dosage: 1.2 MG, QD
     Route: 042
     Dates: start: 20220725, end: 20221128
  6. VINCRISTINE [Suspect]
     Active Substance: VINCRISTINE
     Indication: Rhabdomyosarcoma
     Dosage: 1.2 MG, QD
     Route: 042
     Dates: end: 20221214
  7. LEVOMEPROMAZINA [LEVOMEPROMAZINE] [Concomitant]
     Indication: Antiemetic supportive care
     Dosage: UNK
     Dates: start: 20220804
  8. ONDANSETRON [Concomitant]
     Active Substance: ONDANSETRON
     Indication: Antiemetic supportive care
     Dosage: UNK
     Dates: start: 20220222
  9. OMEPRAZOLE [Concomitant]
     Active Substance: OMEPRAZOLE
     Indication: Gastrointestinal disorder prophylaxis
     Dosage: UNK
     Dates: start: 20220823
  10. MORPHINE SULFATE [Concomitant]
     Active Substance: MORPHINE SULFATE
     Indication: Pain
     Dosage: UNK
     Dates: start: 20220722
  11. COTRIMOXAZOLE [Concomitant]
     Active Substance: SULFAMETHOXAZOLE\TRIMETHOPRIM
     Indication: Prophylaxis
     Dosage: UNK
     Dates: start: 20220730
  12. FUSIDIC ACID;HYDROCORTISONE [Concomitant]
     Indication: Stoma site infection
     Dosage: UNK
     Dates: start: 20221127, end: 20221211
  13. CLOTRIMAZOLE [Concomitant]
     Active Substance: CLOTRIMAZOLE
     Indication: Stoma site infection
     Dosage: UNK
     Dates: start: 20221121, end: 20221128

REACTIONS (2)
  - Dehydration [Recovered/Resolved]
  - Device related infection [Not Recovered/Not Resolved]

NARRATIVE: CASE EVENT DATE: 20221202
